FAERS Safety Report 8395363-9 (Version None)
Quarter: 2012Q2

REPORT INFORMATION
  Report Type: 
  Country: None (occurrence: None)
  Receive Date: 20120530
  Receipt Date: 20120521
  Transmission Date: 20120825
  Serious: Yes (Other)
  Sender: FDA-Public Use
  Company Number: JP-VERTEX PHARMACEUTICALS INC.-AE-2012-006010

PATIENT
  Age: 67 Year
  Sex: Male

DRUGS (16)
  1. CONIEL [Concomitant]
     Route: 048
     Dates: end: 20120420
  2. LOSARTAN POTASSIUM AND HYDROCHLOROTHIAZIDE [Concomitant]
     Route: 048
     Dates: end: 20120420
  3. PEGINTERFERON ALFA-2B [Concomitant]
     Route: 051
     Dates: start: 20120418, end: 20120418
  4. WARFARIN SODIUM [Concomitant]
     Route: 048
     Dates: end: 20120422
  5. LOSARTAN POTASSIUM AND HYDROCHLOROTHIAZIDE [Concomitant]
     Route: 048
     Dates: start: 20120422
  6. TELAVIC (TELAPREVIR) [Suspect]
     Indication: HEPATITIS C
     Route: 048
     Dates: start: 20120418, end: 20120420
  7. DIGOXIN [Concomitant]
     Route: 048
     Dates: end: 20120420
  8. WARFARIN SODIUM [Concomitant]
     Route: 048
     Dates: end: 20120420
  9. DIGOXIN [Concomitant]
     Route: 048
     Dates: start: 20120422
  10. CONIEL [Concomitant]
     Route: 048
     Dates: start: 20120422
  11. RIBAVIRIN [Concomitant]
     Route: 048
     Dates: start: 20120418, end: 20120420
  12. BISOPROLOL FUMARATE [Concomitant]
     Route: 048
     Dates: start: 20120422
  13. LOSARTAN POTASSIUM AND HYDROCHLOROTHIAZIDE [Concomitant]
     Route: 048
     Dates: end: 20120420
  14. LASIX [Concomitant]
     Route: 048
     Dates: end: 20120420
  15. LASIX [Concomitant]
     Route: 048
     Dates: start: 20120422
  16. BISOPROLOL FUMARATE [Concomitant]
     Route: 048
     Dates: end: 20120420

REACTIONS (5)
  - HAEMOGLOBIN DECREASED [None]
  - BLOOD PRESSURE DECREASED [None]
  - HEART RATE DECREASED [None]
  - RENAL FAILURE ACUTE [None]
  - PYREXIA [None]
